FAERS Safety Report 6762513-7 (Version None)
Quarter: 2010Q2

REPORT INFORMATION
  Report Type: 
  Country: None (occurrence: None)
  Receive Date: 20100527
  Receipt Date: 20091001
  Transmission Date: 20101027
  Serious: Yes (Hospitalization)
  Sender: FDA-Public Use
  Company Number: 2009-04156

PATIENT
  Age: 77 Year
  Sex: Female

DRUGS (1)
  1. THERACYS [Suspect]
     Indication: BLADDER CANCER
     Dosage: I. VES.
     Route: 043

REACTIONS (4)
  - BLADDER IRRITATION [None]
  - BOVINE TUBERCULOSIS [None]
  - CHILLS [None]
  - PYREXIA [None]
